FAERS Safety Report 8983878 (Version 1)
Quarter: 2012Q4

REPORT INFORMATION
  Report Type: Report from Study
  Country: NL (occurrence: NL)
  Receive Date: 20121224
  Receipt Date: 20121224
  Transmission Date: 20130627
  Serious: Yes (Death)
  Sender: FDA-Public Use
  Company Number: NL-ROCHE-1172515

PATIENT
  Age: 92 Year
  Sex: Female
  Weight: 65 kg

DRUGS (3)
  1. RANIBIZUMAB [Suspect]
     Indication: PRODUCT USED FOR UNKNOWN INDICATION
     Route: 050
  2. NIFEDIPINE [Concomitant]
  3. NITROFURANTOIN [Concomitant]

REACTIONS (1)
  - Death [Fatal]
